FAERS Safety Report 13653068 (Version 1)
Quarter: 2017Q2

REPORT INFORMATION
  Report Type: Spontaneous
  Country: US (occurrence: US)
  Receive Date: 20170614
  Receipt Date: 20170614
  Transmission Date: 20170830
  Serious: No
  Sender: FDA-Public Use
  Company Number: US-ROCHE-1540725

PATIENT
  Sex: Female

DRUGS (1)
  1. CAPECITABINE. [Suspect]
     Active Substance: CAPECITABINE
     Indication: PRODUCT USED FOR UNKNOWN INDICATION
     Dosage: 3 TABS BID FOR 2 WKS, THEN OFF FOR ONE WEEK, THEN RESUME
     Route: 048
     Dates: start: 20140917, end: 20150214

REACTIONS (1)
  - Drug ineffective [Unknown]
